FAERS Safety Report 25207533 (Version 1)
Quarter: 2025Q2

REPORT INFORMATION
  Report Type: Report from Study
  Country: TN (occurrence: TN)
  Receive Date: 20250417
  Receipt Date: 20250417
  Transmission Date: 20250716
  Serious: Yes (Hospitalization)
  Sender: EMD SERONO INC
  Company Number: TN-Merck Healthcare KGaA-2025017835

PATIENT
  Age: 36 Year
  Sex: Female

DRUGS (1)
  1. REBIF [Suspect]
     Active Substance: INTERFERON BETA-1A
     Indication: Multiple sclerosis
     Dates: start: 20180110

REACTIONS (2)
  - Alopecia [Not Recovered/Not Resolved]
  - Dandruff [Unknown]

NARRATIVE: CASE EVENT DATE: 20240801
